FAERS Safety Report 4803854-X (Version None)
Quarter: 2005Q4

REPORT INFORMATION
  Report Type: 
  Country: None (occurrence: None)
  Receive Date: 20051019
  Receipt Date: 20051013
  Transmission Date: 20060501
  Serious: Yes (Hospitalization, Other)
  Sender: FDA-Public Use
  Company Number: US-MERCK-0510USA07287

PATIENT
  Age: 80 Year
  Sex: Female

DRUGS (2)
  1. VYTORIN [Suspect]
     Indication: BLOOD CHOLESTEROL INCREASED
     Route: 048
     Dates: start: 20050901
  2. DANAZOL [Concomitant]
     Route: 065

REACTIONS (2)
  - BLOOD UREA INCREASED [None]
  - RHABDOMYOLYSIS [None]
